FAERS Safety Report 19469901 (Version 1)
Quarter: 2021Q2

REPORT INFORMATION
  Report Type: Spontaneous
  Country: ES (occurrence: ES)
  Receive Date: 20210628
  Receipt Date: 20210628
  Transmission Date: 20210717
  Serious: Yes (Other)
  Sender: FDA-Public Use
  Company Number: ES-MYLANLABS-2021M1037050

PATIENT
  Age: 71 Year
  Sex: Female

DRUGS (1)
  1. DONEPEZIL. [Suspect]
     Active Substance: DONEPEZIL
     Indication: DEMENTIA ALZHEIMER^S TYPE
     Dosage: 5 MILLIGRAM, QD (5 MG, 1X/DAY, ADMINISTERED AT NIGHT AS A SINGLE DOSE)
     Dates: start: 1998

REACTIONS (1)
  - Myocardial ischaemia [Recovered/Resolved]
